FAERS Safety Report 9340453 (Version 1)
Quarter: 2013Q2

REPORT INFORMATION
  Report Type: Spontaneous
  Country: US (occurrence: US)
  Receive Date: 20130610
  Receipt Date: 20130610
  Transmission Date: 20140414
  Serious: Yes (Other)
  Sender: FDA-Public Use
  Company Number: US-PERRIGO-13US005873

PATIENT
  Sex: Female

DRUGS (1)
  1. LICE SHMPO LIQ 866 [Suspect]
     Indication: LICE INFESTATION
     Dosage: UNK, UNK
     Route: 061

REACTIONS (1)
  - Convulsion [Unknown]
